FAERS Safety Report 9867308 (Version 1)
Quarter: 2014Q1

REPORT INFORMATION
  Report Type: Spontaneous
  Country: US (occurrence: None)
  Receive Date: 20140131
  Receipt Date: 20140131
  Transmission Date: 20141002
  Serious: Yes (Death)
  Sender: FDA-Public Use
  Company Number: 2014AP000719

PATIENT
  Age: 54 Year
  Sex: Male

DRUGS (8)
  1. LOSARTAN POTASSIUM TABLETS [Suspect]
     Dosage: ; PO
     Route: 048
  2. METFORMIN [Suspect]
     Dosage: ; PO
     Route: 048
  3. FAMOTIDINE [Suspect]
     Dosage: ; PO
     Route: 048
  4. LORAZEPAM [Suspect]
     Dosage: ; PO
     Route: 048
  5. HYDROXYZINE [Suspect]
     Dosage: ; PO
     Route: 048
  6. POTASSIUM CHLORIDE [Suspect]
     Dosage: ; PO
     Route: 048
  7. CLINDAMYCIN [Suspect]
     Dosage: ; PO
     Route: 048
  8. SALICYLATES NOS [Suspect]
     Dosage: ; PO
     Route: 048

REACTIONS (2)
  - Completed suicide [None]
  - Toxicity to various agents [None]
